FAERS Safety Report 5237072-0 (Version None)
Quarter: 2007Q1

REPORT INFORMATION
  Report Type: 
  Country: None (occurrence: None)
  Receive Date: 20070213
  Receipt Date: 20070129
  Transmission Date: 20070707
  Serious: Yes (Hospitalization)
  Sender: FDA-Public Use
  Company Number: US-KINGPHARMUSA00001-K200601613

PATIENT

DRUGS (10)
  1. ALTACE [Suspect]
     Dosage: 5 MG, QD
     Route: 048
     Dates: end: 20061030
  2. ALTACE [Suspect]
     Dates: start: 20061101
  3. ACARBOSE [Suspect]
     Dosage: 50 MG, QD
     Route: 048
     Dates: end: 20061030
  4. ALLOPURINOL SODIUM [Suspect]
     Dosage: 1 U, QD
     Route: 048
     Dates: end: 20061030
  5. TAREG [Suspect]
     Dosage: 80 MG, QD
     Route: 048
     Dates: end: 20061030
  6. BIPRETERAX [Suspect]
     Dosage: 1 U, QD
     Dates: start: 20050901, end: 20061030
  7. RANITIDINE [Suspect]
     Dosage: 50 MG, QD
     Route: 048
     Dates: end: 20061030
  8. LASILIX                            /00032601/ [Concomitant]
  9. DIAMICRON [Concomitant]
  10. ASPEGIC                            /00657701/ [Concomitant]
     Dosage: UNK, UNK

REACTIONS (5)
  - ATRIAL FIBRILLATION [None]
  - ATRIAL TACHYCARDIA [None]
  - DYSPNOEA [None]
  - LARYNGEAL OEDEMA [None]
  - TONGUE OEDEMA [None]
